FAERS Safety Report 21147605 (Version 2)
Quarter: 2022Q3

REPORT INFORMATION
  Report Type: Spontaneous
  Country: US (occurrence: US)
  Receive Date: 20220729
  Receipt Date: 20220907
  Transmission Date: 20221027
  Serious: No
  Sender: FDA-Public Use
  Company Number: US-BIOVITRUM-2022US07132

PATIENT
  Sex: Female

DRUGS (2)
  1. KINERET [Suspect]
     Active Substance: ANAKINRA
     Indication: Rheumatoid arthritis
     Dates: start: 20200502
  2. OTEZLA [Suspect]
     Active Substance: APREMILAST

REACTIONS (4)
  - Nausea [Unknown]
  - Dizziness [Unknown]
  - Adverse reaction [Unknown]
  - Drug ineffective [Unknown]
